FAERS Safety Report 16485725 (Version 2)
Quarter: 2019Q3

REPORT INFORMATION
  Report Type: Report from Study
  Country: US (occurrence: US)
  Receive Date: 20190627
  Receipt Date: 20190729
  Transmission Date: 20191004
  Serious: No
  Sender: FDA-Public Use
  Company Number: US-SA-2019SA173123

PATIENT
  Age: 66 Year
  Sex: Female

DRUGS (1)
  1. ALIROCUMAB [Suspect]
     Active Substance: ALIROCUMAB
     Dosage: UNK UNK, QOW

REACTIONS (4)
  - Urticaria [Unknown]
  - Injection site pruritus [Unknown]
  - Peripheral swelling [Unknown]
  - Injection site swelling [Unknown]
